FAERS Safety Report 5086748-7 (Version None)
Quarter: 2006Q3

REPORT INFORMATION
  Report Type: 
  Country: None (occurrence: None)
  Receive Date: 20060823
  Receipt Date: 20060814
  Transmission Date: 20061208
  Serious: Yes (Hospitalization)
  Sender: FDA-Public Use
  Company Number: DE-JNJFOC-20050606856

PATIENT
  Age: 53 Year
  Sex: Female

DRUGS (6)
  1. RISPERDAL [Suspect]
     Route: 048
  2. RISPERDAL [Suspect]
     Indication: DRUG USE FOR UNKNOWN INDICATION
     Route: 048
  3. TAXILAN [Interacting]
     Indication: DRUG USE FOR UNKNOWN INDICATION
     Route: 048
  4. TAVOR [Concomitant]
     Route: 048
  5. LANITOP [Concomitant]
     Route: 048
  6. XANEF [Concomitant]
     Route: 048

REACTIONS (3)
  - DRUG INTERACTION [None]
  - OEDEMA PERIPHERAL [None]
  - STASIS DERMATITIS [None]
